FAERS Safety Report 21129523 (Version 1)
Quarter: 2022Q3

REPORT INFORMATION
  Report Type: Spontaneous
  Country: RS (occurrence: RS)
  Receive Date: 20220726
  Receipt Date: 20220726
  Transmission Date: 20221027
  Serious: Yes (Death, Hospitalization)
  Sender: FDA-Public Use
  Company Number: RS-MACLEODS PHARMACEUTICALS US LTD-MAC2022036513

PATIENT
  Age: 59 Year
  Sex: Female

DRUGS (5)
  1. OLANZAPINE [Suspect]
     Active Substance: OLANZAPINE
     Indication: Psychiatric disorder prophylaxis
     Dosage: 560 MILLIGRAM
     Route: 065
  2. CLOZAPINE [Suspect]
     Active Substance: CLOZAPINE
     Indication: Psychiatric disorder prophylaxis
     Dosage: 1000 MILLIGRAM
     Route: 065
  3. ZOLPIDEM [Suspect]
     Active Substance: ZOLPIDEM TARTRATE
     Indication: Psychiatric disorder prophylaxis
     Dosage: 300 MILLIGRAM
     Route: 065
  4. LAMOTRIGINE [Suspect]
     Active Substance: LAMOTRIGINE
     Indication: Psychiatric disorder prophylaxis
     Dosage: UNK
     Route: 065
  5. MIDAZOLAM [Suspect]
     Active Substance: MIDAZOLAM
     Indication: Psychiatric disorder prophylaxis
     Dosage: 990 MILLIGRAM
     Route: 065

REACTIONS (7)
  - Acute kidney injury [Fatal]
  - Pneumonia [Fatal]
  - Toxicity to various agents [Unknown]
  - Hypotension [Unknown]
  - Loss of consciousness [Unknown]
  - Coma [Unknown]
  - Overdose [Unknown]
